FAERS Safety Report 5990230-X (Version None)
Quarter: 2008Q4

REPORT INFORMATION
  Report Type: 
  Country: None (occurrence: None)
  Receive Date: 20081211
  Receipt Date: 20080418
  Transmission Date: 20090506
  Serious: No
  Sender: FDA-Public Use
  Company Number: US-AMGEN-KDL274198

PATIENT
  Sex: Male

DRUGS (18)
  1. ENBREL [Suspect]
     Indication: PSORIATIC ARTHROPATHY
     Route: 058
     Dates: start: 20080401
  2. ENBREL [Suspect]
     Indication: PSORIASIS
  3. UNKNOWN [Suspect]
  4. LEXAPRO [Suspect]
  5. TRICOR [Suspect]
  6. VERAPAMIL [Suspect]
  7. PLAVIX [Suspect]
  8. NIACIN [Suspect]
  9. MAGNESIUM OXIDE [Suspect]
  10. UNKNOWN [Suspect]
  11. CRESTOR [Suspect]
  12. FLOMAX [Suspect]
  13. SINGULAIR [Suspect]
  14. ZETIA [Suspect]
  15. PROTONIX [Suspect]
  16. SYMLIN [Suspect]
  17. SYNTHROID [Suspect]
  18. TOPAMAX [Suspect]

REACTIONS (2)
  - RASH ERYTHEMATOUS [None]
  - RASH PRURITIC [None]
